FAERS Safety Report 16642294 (Version 1)
Quarter: 2019Q3

REPORT INFORMATION
  Report Type: Report from Study
  Country: US (occurrence: US)
  Receive Date: 20190729
  Receipt Date: 20190729
  Transmission Date: 20191004
  Serious: No
  Sender: FDA-Public Use
  Company Number: US-KYOWAKIRIN-2019BKK011832

PATIENT

DRUGS (1)
  1. CRYSVITA [Suspect]
     Active Substance: BUROSUMAB-TWZA
     Indication: PRODUCT USED FOR UNKNOWN INDICATION
     Dosage: 76 MG, EVERY 4 WEEKS
     Route: 065

REACTIONS (3)
  - Adverse event [Unknown]
  - Incorrect dose administered [Not Recovered/Not Resolved]
  - Tooth fracture [Unknown]
